FAERS Safety Report 8941805 (Version 1)
Quarter: 2012Q4

REPORT INFORMATION
  Report Type: 
  Country: GB (occurrence: GB)
  Receive Date: 20121203
  Receipt Date: 20121203
  Transmission Date: 20130627
  Serious: Yes (Hospitalization, Other)
  Sender: FDA-Public Use
  Company Number: GB-TEVA-371940ISR

PATIENT
  Age: 64 Year
  Sex: Female
  Weight: 112.5 kg

DRUGS (10)
  1. FUROSEMIDE [Suspect]
     Route: 048
  2. FUROSEMIDE [Suspect]
     Route: 048
  3. IPRATROPIUM [Suspect]
     Route: 045
  4. ZAPONEX [Suspect]
     Route: 048
     Dates: start: 20120717, end: 20121030
  5. ZAPONEX [Suspect]
     Route: 048
     Dates: start: 20101006, end: 20110608
  6. RAMIPRIL [Concomitant]
     Route: 048
  7. DEPAKOTE [Concomitant]
     Route: 048
  8. LEVOMEPROMAZINE [Concomitant]
     Dates: start: 20121031
  9. METFORMIN [Concomitant]
     Route: 048
  10. SIMVASTATIN [Concomitant]
     Route: 048

REACTIONS (6)
  - Treatment noncompliance [Unknown]
  - Mental impairment [Unknown]
  - Leukopenia [Recovered/Resolved]
  - Neutrophil count decreased [Recovered/Resolved]
  - White blood cell count decreased [Recovered/Resolved]
  - Platelet count decreased [Recovered/Resolved]
